FAERS Safety Report 5658315-5 (Version None)
Quarter: 2008Q1

REPORT INFORMATION
  Report Type: 
  Country: None (occurrence: None)
  Receive Date: 20080310
  Receipt Date: 20070126
  Transmission Date: 20080703
  Serious: No
  Sender: FDA-Public Use
  Company Number: US-BAYER-200710305BCC

PATIENT
  Age: 60 Year
  Sex: Male
  Weight: 86 kg

DRUGS (5)
  1. ALEVE [Suspect]
     Indication: SCIATICA
     Dosage: TOTAL DAILY DOSE: 220 MG  UNIT DOSE: 220 MG
     Route: 048
     Dates: start: 20070125
  2. CRESTOR [Concomitant]
  3. ACIPHEX [Concomitant]
  4. FOLIC ACID [Concomitant]
  5. NIASPAN [Concomitant]

REACTIONS (1)
  - INSOMNIA [None]
